FAERS Safety Report 22152102 (Version 1)
Quarter: 2023Q1

REPORT INFORMATION
  Report Type: Spontaneous
  Country: FR (occurrence: FR)
  Receive Date: 20230329
  Receipt Date: 20230329
  Transmission Date: 20230418
  Serious: Yes (Hospitalization)
  Sender: FDA-Public Use
  Company Number: None

PATIENT
  Age: 47 Year
  Sex: Male
  Weight: 72 kg

DRUGS (2)
  1. ENTECAVIR [Suspect]
     Active Substance: ENTECAVIR
     Indication: Hepatitis B
     Route: 065
     Dates: start: 2018
  2. BULEVIRTIDE [Suspect]
     Active Substance: BULEVIRTIDE
     Indication: Hepatitis D
     Route: 065
     Dates: start: 202201, end: 20230121

REACTIONS (1)
  - Lichen planus [Recovering/Resolving]

NARRATIVE: CASE EVENT DATE: 20221101
